FAERS Safety Report 7489893-1 (Version None)
Quarter: 2011Q2

REPORT INFORMATION
  Report Type: 
  Country: None (occurrence: None)
  Receive Date: 20110517
  Receipt Date: 20110517
  Transmission Date: 20111010
  Serious: Yes (Other)
  Sender: FDA-Public Use
  Company Number: None

PATIENT
  Sex: Male
  Weight: 99.5 kg

DRUGS (1)
  1. ISOVUE-300 [Suspect]
     Indication: COMPUTERISED TOMOGRAM
     Dosage: 100 CC X1 IVP
     Route: 042
     Dates: start: 20100802

REACTIONS (2)
  - INJECTION SITE EXTRAVASATION [None]
  - OEDEMA PERIPHERAL [None]
